FAERS Safety Report 23283581 (Version 2)
Quarter: 2023Q4

REPORT INFORMATION
  Report Type: Spontaneous
  Country: US (occurrence: US)
  Receive Date: 20231211
  Receipt Date: 20231211
  Transmission Date: 20240109
  Serious: Yes (Life-Threatening, Hospitalization, Other)
  Sender: FDA-Public Use
  Company Number: US-PFIZER INC-202300418623

PATIENT
  Age: 57 Year
  Sex: Male

DRUGS (2)
  1. ARGATROBAN [Suspect]
     Active Substance: ARGATROBAN
     Indication: Acute myocardial infarction
     Dosage: UNK
  2. ARGATROBAN [Suspect]
     Active Substance: ARGATROBAN
     Indication: Thrombocytopenia

REACTIONS (3)
  - Disseminated intravascular coagulation [Recovering/Resolving]
  - Pulmonary embolism [Recovering/Resolving]
  - Cardiac ventricular thrombosis [Recovering/Resolving]
